FAERS Safety Report 25196298 (Version 1)
Quarter: 2025Q2

REPORT INFORMATION
  Report Type: Spontaneous
  Country: US (occurrence: US)
  Receive Date: 20250415
  Receipt Date: 20250415
  Transmission Date: 20250717
  Serious: No
  Sender: MERCK SHARP AND DOHME
  Company Number: US-009507513-2264658

PATIENT
  Sex: Female

DRUGS (4)
  1. KEYTRUDA [Suspect]
     Active Substance: PEMBROLIZUMAB
  2. TAXOL [Suspect]
     Active Substance: PACLITAXEL
  3. DARIFENACIN [Suspect]
     Active Substance: DARIFENACIN
  4. CYTOXAN [Suspect]
     Active Substance: CYCLOPHOSPHAMIDE

REACTIONS (7)
  - Somnolence [Unknown]
  - Hunger [Unknown]
  - Hepatic function abnormal [Recovered/Resolved]
  - Weight increased [Unknown]
  - Fatigue [Unknown]
  - White blood cell count decreased [Unknown]
  - Alopecia [Unknown]
